FAERS Safety Report 8362799-1 (Version None)
Quarter: 2012Q2

REPORT INFORMATION
  Report Type: 
  Country: None (occurrence: None)
  Receive Date: 20120516
  Receipt Date: 20120510
  Transmission Date: 20120825
  Serious: No
  Sender: FDA-Public Use
  Company Number: PHHY2012IT035505

PATIENT
  Sex: Female

DRUGS (6)
  1. ASPIRIN [Concomitant]
     Dosage: 100 MG,
     Route: 048
  2. FOLINA [Concomitant]
     Dosage: 5 MG,
     Route: 048
  3. LEVOTHYROXINE SODIUM [Concomitant]
     Dosage: 100 UG,
     Route: 048
  4. LERCADIP [Concomitant]
     Dosage: 20 MG,
     Route: 048
  5. TASIGNA [Suspect]
     Indication: CHRONIC MYELOID LEUKAEMIA
     Dosage: 600 MG, DAILY
     Route: 048
     Dates: start: 20120104, end: 20120423
  6. PERINDOPRIL ERBUMINE [Concomitant]
     Dosage: 10 MG,
     Route: 048

REACTIONS (5)
  - ANXIETY [None]
  - TINNITUS [None]
  - PALPITATIONS [None]
  - MYALGIA [None]
  - MUSCLE SPASMS [None]
